FAERS Safety Report 4824726-0 (Version None)
Quarter: 2005Q4

REPORT INFORMATION
  Report Type: 
  Country: None (occurrence: None)
  Receive Date: 20051014
  Receipt Date: 20050627
  Transmission Date: 20060501
  Serious: Yes (Hospitalization)
  Sender: FDA-Public Use
  Company Number: 2005SP001746

PATIENT
  Age: 67 Year
  Sex: Male
  Weight: 90.7194 kg

DRUGS (9)
  1. LUNESTA [Suspect]
     Indication: INSOMNIA
     Dosage: 2 MG;HS;ORAL
     Route: 048
     Dates: start: 20050505, end: 20050519
  2. INSULIN [Concomitant]
  3. ACTOS [Concomitant]
  4. METFORMIN [Concomitant]
  5. LIPITOR [Concomitant]
  6. TERAZOLIN [Concomitant]
  7. BUSPIRONE [Concomitant]
  8. ECOTRIN [Concomitant]
  9. FLONASE [Concomitant]

REACTIONS (2)
  - ANGINA PECTORIS [None]
  - DIZZINESS [None]
